FAERS Safety Report 10637681 (Version 1)
Quarter: 2014Q4

REPORT INFORMATION
  Report Type: Spontaneous
  Country: US (occurrence: None)
  Receive Date: 20141121
  Receipt Date: 20141121
  Transmission Date: 20150529
  Serious: No
  Sender: FDA-Public Use
  Company Number: 163-1004-14074499

PATIENT
  Age: 65 Year
  Sex: Male

DRUGS (10)
  1. AMLODIPINE/ATORVASTATIN(AMLODIPINE W/ATORVASTATI [Concomitant]
  2. ENALAPRIL MALEATE. [Concomitant]
     Active Substance: ENALAPRIL MALEATE
  3. ATORVASTATIN CALCIUM. [Concomitant]
     Active Substance: ATORVASTATIN CALCIUM
  4. CELEBREX(CELECOXIB) [Concomitant]
  5. OMEGA 3 (FISH OIL) [Concomitant]
     Active Substance: OMEGA-3 FATTY ACIDS
  6. OTEZLA [Suspect]
     Active Substance: APREMILAST
     Indication: PSORIATIC ARTHROPATHY
     Route: 048
     Dates: start: 20140630
  7. ATENOLOL. [Concomitant]
     Active Substance: ATENOLOL
  8. AGGRENOX(ASSANTIN) [Concomitant]
  9. FENOFIBRATE. [Concomitant]
     Active Substance: FENOFIBRATE
  10. GLUMETAZA(METFORMIN HYDROCHLORIDE) [Concomitant]

REACTIONS (2)
  - Diarrhoea [None]
  - Headache [None]

NARRATIVE: CASE EVENT DATE: 2014
